FAERS Safety Report 5097887-9 (Version None)
Quarter: 2006Q3

REPORT INFORMATION
  Report Type: 
  Country: None (occurrence: None)
  Receive Date: 20060905
  Receipt Date: 20060818
  Transmission Date: 20061208
  Serious: Yes (Death)
  Sender: FDA-Public Use
  Company Number: VNL_0041_2006

PATIENT
  Age: 67 Year
  Sex: Female

DRUGS (7)
  1. APOMORPHINE HYDROCHLORIDE [Suspect]
     Indication: PARKINSONISM
     Dosage: 3 MG/HR INFUSION SC
     Route: 058
     Dates: start: 20050701, end: 20050819
  2. APOMORPHINE HYDROCHLORIDE [Suspect]
     Indication: PARKINSONISM
     Dosage: DF INFUSION SC
     Route: 058
     Dates: start: 20050819, end: 20050821
  3. VENLAFAXINE HCL [Concomitant]
  4. AMANTADINE HCL [Concomitant]
  5. L-THYROXIN [Concomitant]
  6. IDEOS/ CALCIUM CARBONATE VITAMIN D3 [Concomitant]
  7. PIRENZEPINE DIHYDROCHLORIDE [Concomitant]

REACTIONS (22)
  - ANXIETY [None]
  - APPETITE DISORDER [None]
  - ATELECTASIS [None]
  - BODY TEMPERATURE INCREASED [None]
  - BRONCHOPNEUMONIA [None]
  - CHRONIC OBSTRUCTIVE PULMONARY DISEASE [None]
  - DECUBITUS ULCER [None]
  - DEPRESSION [None]
  - DISTURBANCE IN ATTENTION [None]
  - FATIGUE [None]
  - GENERAL PHYSICAL HEALTH DETERIORATION [None]
  - HYPERNATRAEMIA [None]
  - HYPOKINESIA [None]
  - HYPOXIC ENCEPHALOPATHY [None]
  - METABOLIC ACIDOSIS [None]
  - OSTEOPOROSIS [None]
  - PAIN [None]
  - RENAL FAILURE ACUTE [None]
  - RESPIRATORY DEPRESSION [None]
  - RESPIRATORY FAILURE [None]
  - SLEEP DISORDER [None]
  - SPINAL FRACTURE [None]
